FAERS Safety Report 7472977-1 (Version None)
Quarter: 2011Q2

REPORT INFORMATION
  Report Type: 
  Country: None (occurrence: None)
  Receive Date: 20110511
  Receipt Date: 20110426
  Transmission Date: 20111010
  Serious: Yes (Other)
  Sender: FDA-Public Use
  Company Number: PHHY2010CA69390

PATIENT
  Sex: Female

DRUGS (1)
  1. SANDOSTATIN LAR [Suspect]
     Indication: GASTROINTESTINAL ANGIODYSPLASIA
     Dosage: 20 MG, QMO
     Route: 030
     Dates: start: 20090101

REACTIONS (8)
  - FATIGUE [None]
  - SLEEP DISORDER [None]
  - ANGINA PECTORIS [None]
  - COUGH [None]
  - MYALGIA [None]
  - INSOMNIA [None]
  - INFLUENZA [None]
  - CHILLS [None]
